FAERS Safety Report 21757509 (Version 5)
Quarter: 2023Q1

REPORT INFORMATION
  Report Type: Spontaneous
  Country: US (occurrence: US)
  Receive Date: 20221221
  Receipt Date: 20230309
  Transmission Date: 20230417
  Serious: Yes (Hospitalization, Other)
  Sender: FDA-Public Use
  Company Number: US-002147023-NVSC2022US293617

PATIENT
  Age: 19 Year
  Sex: Female
  Weight: 57.2 kg

DRUGS (3)
  1. ARZERRA [Suspect]
     Active Substance: OFATUMUMAB
     Indication: Systemic lupus erythematosus
     Dosage: 700 MG (ONE SINGLE DOSE, INFUSION RATE ON 25ML/ HR (INITIAL WAS 12 ML/ HR FOR THE FIRST 30 MIN))
     Route: 042
     Dates: start: 20221215, end: 20221215
  2. ARZERRA [Suspect]
     Active Substance: OFATUMUMAB
     Dosage: 700 MG
     Route: 065
     Dates: start: 20221216, end: 20221216
  3. BENLYSTA [Concomitant]
     Active Substance: BELIMUMAB
     Indication: Product used for unknown indication
     Dosage: UNK
     Route: 058

REACTIONS (8)
  - Rash macular [Recovered/Resolved]
  - Partial seizures [Not Recovered/Not Resolved]
  - Fatigue [Not Recovered/Not Resolved]
  - Head discomfort [Not Recovered/Not Resolved]
  - Disorientation [Not Recovered/Not Resolved]
  - Dizziness [Not Recovered/Not Resolved]
  - Gastrooesophageal reflux disease [Not Recovered/Not Resolved]
  - Product use in unapproved indication [Unknown]

NARRATIVE: CASE EVENT DATE: 20221215
